FAERS Safety Report 5083301-6 (Version None)
Quarter: 2006Q3

REPORT INFORMATION
  Report Type: 
  Country: None (occurrence: None)
  Receive Date: 20060818
  Receipt Date: 20060727
  Transmission Date: 20061208
  Serious: Yes (Hospitalization, Other)
  Sender: FDA-Public Use
  Company Number: US-AVENTIS-200616253US

PATIENT
  Sex: Female

DRUGS (3)
  1. ALLEGRA-D 12 HOUR [Suspect]
     Indication: HYPERSENSITIVITY
     Dosage: DOSE: UNK
     Dates: start: 20000101, end: 20050920
  2. MIRCETTE [Suspect]
     Indication: ORAL CONTRACEPTION
     Dosage: DOSE: 0.15/0.02
     Route: 048
     Dates: start: 19980101, end: 20050920
  3. MIRCETTE [Suspect]
     Indication: MENSTRUAL DISORDER
     Dosage: DOSE: 0.15/0.02
     Route: 048
     Dates: start: 19980101, end: 20050920

REACTIONS (9)
  - APHASIA [None]
  - APRAXIA [None]
  - CEREBROVASCULAR ACCIDENT [None]
  - HEADACHE [None]
  - HEMIPARESIS [None]
  - HEMIPLEGIA [None]
  - HYPOAESTHESIA FACIAL [None]
  - MIGRAINE [None]
  - VOMITING [None]
